FAERS Safety Report 8789917 (Version 1)
Quarter: 2012Q4

REPORT INFORMATION
  Report Type: 
  Country: DE (occurrence: DE)
  Receive Date: 20120917
  Receipt Date: 20120917
  Transmission Date: 20130627
  Serious: Yes (Death)
  Sender: FDA-Public Use
  Company Number: DE-ASTRAZENECA-2012SE71196

PATIENT
  Age: 57 Year
  Sex: Male
  Weight: 98.5 kg

DRUGS (3)
  1. SEROQUEL [Suspect]
     Indication: SCHIZOPHRENIA, PARANOID TYPE
     Route: 048
     Dates: start: 20060411, end: 20120829
  2. FLUANXOL [Suspect]
     Indication: SCHIZOPHRENIA, PARANOID TYPE
     Route: 030
     Dates: start: 20060411, end: 20120829
  3. AKINETON [Concomitant]
     Indication: AKATHISIA
     Route: 048
     Dates: start: 20060411, end: 20120829

REACTIONS (1)
  - Sudden cardiac death [Fatal]
